FAERS Safety Report 7596300-7 (Version None)
Quarter: 2011Q3

REPORT INFORMATION
  Report Type: 
  Country: None (occurrence: None)
  Receive Date: 20110707
  Receipt Date: 20110629
  Transmission Date: 20111222
  Serious: Yes (Hospitalization)
  Sender: FDA-Public Use
  Company Number: DE-BAXTER-2011BH011348

PATIENT
  Age: 64 Year
  Sex: Female
  Weight: 73 kg

DRUGS (13)
  1. MESNA [Suspect]
     Route: 048
     Dates: start: 20110201
  2. CYCLOPHOSPHAMIDE [Suspect]
     Indication: BREAST CANCER
     Route: 042
     Dates: start: 20110329, end: 20110329
  3. FLUOROURACIL [Suspect]
     Route: 065
     Dates: start: 20110308, end: 20110308
  4. LENOGRASTIM [Concomitant]
     Indication: PRODUCT USED FOR UNKNOWN INDICATION
     Route: 065
  5. ERYPO [Concomitant]
     Indication: PRODUCT USED FOR UNKNOWN INDICATION
     Route: 065
  6. MESNA [Suspect]
     Indication: PROPHYLAXIS
     Route: 042
     Dates: start: 20110201
  7. EPIRUBICIN HYDROCHLORIDE [Suspect]
     Route: 065
     Dates: start: 20110308, end: 20110308
  8. CYCLOPHOSPHAMIDE [Suspect]
     Route: 065
     Dates: start: 20110308, end: 20110308
  9. MESNA [Suspect]
     Route: 048
     Dates: start: 20110201
  10. FLUOROURACIL [Suspect]
     Indication: BREAST CANCER
     Route: 065
     Dates: start: 20110329, end: 20110329
  11. EPIRUBICIN HYDROCHLORIDE [Suspect]
     Indication: BREAST CANCER
     Route: 065
     Dates: start: 20110329, end: 20110329
  12. OMEPRAZOLE [Concomitant]
     Indication: GASTROOESOPHAGEAL REFLUX DISEASE
     Route: 048
  13. CIPROFLOXACIN [Concomitant]
     Indication: PRODUCT USED FOR UNKNOWN INDICATION
     Route: 048

REACTIONS (2)
  - GLOMERULAR FILTRATION RATE DECREASED [None]
  - RENAL IMPAIRMENT [None]
